FAERS Safety Report 8819044 (Version 1)
Quarter: 2012Q4

REPORT INFORMATION
  Report Type: Spontaneous
  Country: US (occurrence: None)
  Receive Date: 20121004
  Receipt Date: 20121004
  Transmission Date: 20130627
  Serious: Yes (Hospitalization)
  Sender: FDA-Public Use
  Company Number: None

PATIENT
  Sex: Male
  Weight: 63 kg

DRUGS (2)
  1. 5-FLUOROURACIL [Suspect]
     Dates: start: 20120921
  2. CARBOPLATIN [Suspect]
     Dates: start: 20120918

REACTIONS (2)
  - Haemoptysis [None]
  - Thrombocytopenia [None]
